FAERS Safety Report 6387732-3 (Version None)
Quarter: 2009Q4

REPORT INFORMATION
  Report Type: 
  Country: None (occurrence: None)
  Receive Date: 20091005
  Receipt Date: 20090925
  Transmission Date: 20100525
  Serious: No
  Sender: FDA-Public Use
  Company Number: CA-ROCHE-658901

PATIENT

DRUGS (6)
  1. OSELTAMIVIR [Suspect]
     Route: 064
     Dates: start: 20090609, end: 20090621
  2. OSELTAMIVIR [Suspect]
     Route: 064
     Dates: start: 20090621, end: 20090624
  3. FUROSEMIDE [Concomitant]
     Indication: FLUID OVERLOAD
     Route: 064
  4. NOREPINEPHRINE BITARTRATE [Concomitant]
     Indication: SEPTIC SHOCK
     Route: 064
  5. CITALOPRAM HYDROBROMIDE [Concomitant]
     Indication: ANTIDEPRESSANT THERAPY
     Route: 064
  6. AMOXICILLIN [Concomitant]
     Indication: PNEUMONIA
     Route: 064

REACTIONS (1)
  - DRUG EXPOSURE DURING PREGNANCY [None]
